FAERS Safety Report 8161415 (Version 7)
Quarter: 2013Q3

REPORT INFORMATION
  Report Type: Report from Study
  Country: IL (occurrence: IL)
  Receive Date: 20110929
  Receipt Date: 20130712
  Transmission Date: 20140515
  Serious: Yes (Hospitalization)
  Sender: FDA-Public Use
  Company Number: IL-BRISTOL-MYERS SQUIBB COMPANY-16017857

PATIENT
  Age: 75 Year
  Sex: Male

DRUGS (12)
  1. SAXAGLIPTIN [Suspect]
     Indication: TYPE 2 DIABETES MELLITUS
     Dates: start: 20110220, end: 20130127
  2. METFORMIN HCL [Suspect]
     Indication: TYPE 2 DIABETES MELLITUS
  3. APIDRA [Suspect]
     Indication: TYPE 2 DIABETES MELLITUS
     Dosage: UNK-26JUN2012:108IU?27JUN2012-ONG:102IU/UNITS
  4. LANTUS [Suspect]
     Indication: TYPE 2 DIABETES MELLITUS
  5. COUMADIN [Suspect]
     Dosage: 11AUG-11AUG11,12AUG-14AUG11,15AUG11-22SEP11.
     Dates: start: 20110811
  6. ASPIRIN [Concomitant]
     Dosage: 1 DF = GREATTER THAN 100MG,24MAY11 EQUAL TO OR LESSER THAN 100MG
     Dates: start: 20110220
  7. PROCOR [Concomitant]
     Dosage: 11AUG-14AUG11,15AUG-17AUG11,18AUG-20AUG11,21AUG11-ONG.
     Dates: start: 20110811
  8. DORMICUM [Concomitant]
     Dates: start: 20110811, end: 20110811
  9. PLAVIX [Concomitant]
     Dates: start: 20110802, end: 20110802
  10. CLEXANE [Concomitant]
     Dosage: 8AUG-8AUG2011?9AUG2011?9AUG11-10AUG11.
     Dates: start: 20110808, end: 20110810
  11. AEROVENT [Concomitant]
     Dates: start: 20110809
  12. PRADAXA [Concomitant]
     Dates: start: 20110822

REACTIONS (3)
  - Atrial fibrillation [Recovered/Resolved]
  - Cardiac tamponade [Recovered/Resolved]
  - Renal failure acute [Recovered/Resolved]
